FAERS Safety Report 7579645-6 (Version None)
Quarter: 2011Q2

REPORT INFORMATION
  Report Type: 
  Country: None (occurrence: None)
  Receive Date: 20110629
  Receipt Date: 20110621
  Transmission Date: 20111010
  Serious: Yes (Life-Threatening, Hospitalization)
  Sender: FDA-Public Use
  Company Number: NL-JNJFOC-20110610942

PATIENT
  Age: 27 Year
  Sex: Male

DRUGS (9)
  1. HALOPERIDOL [Suspect]
     Indication: AGITATION
     Route: 065
  2. HALOPERIDOL [Suspect]
     Indication: ANXIETY
     Route: 065
  3. DIAZEPAM [Suspect]
     Indication: ANXIETY
     Route: 030
  4. HALOPERIDOL [Suspect]
     Indication: PSYCHOTIC DISORDER
     Route: 065
  5. HALOPERIDOL [Suspect]
     Route: 030
  6. HALOPERIDOL [Suspect]
     Route: 030
  7. DIAZEPAM [Suspect]
     Indication: AGITATION
     Route: 030
  8. DIAZEPAM [Suspect]
     Indication: PSYCHOTIC DISORDER
     Route: 030
  9. HALOPERIDOL [Suspect]
     Route: 030

REACTIONS (3)
  - PARANOIA [None]
  - NEUROLEPTIC MALIGNANT SYNDROME [None]
  - HALLUCINATION [None]
